FAERS Safety Report 12335008 (Version 3)
Quarter: 2016Q3

REPORT INFORMATION
  Report Type: Report from Study
  Country: US (occurrence: US)
  Receive Date: 20160504
  Receipt Date: 20160728
  Transmission Date: 20161109
  Serious: Yes (Other)
  Sender: FDA-Public Use
  Company Number: US-ACTELION-A-NJ2016-132348

PATIENT
  Age: 73 Year
  Sex: Male

DRUGS (3)
  1. RIOCIGUAT [Concomitant]
     Active Substance: RIOCIGUAT
     Dosage: 1 MG, TID
  2. OPSUMIT [Suspect]
     Active Substance: MACITENTAN
     Indication: PULMONARY ARTERIAL HYPERTENSION
     Dosage: 10 MG, QD
     Route: 048
     Dates: start: 20151228
  3. PRADAXA [Concomitant]
     Active Substance: DABIGATRAN ETEXILATE MESYLATE

REACTIONS (9)
  - Condition aggravated [Unknown]
  - Weight increased [Unknown]
  - Mouth ulceration [Unknown]
  - Acute kidney injury [Unknown]
  - Hypotension [Unknown]
  - Glomerular filtration rate decreased [Unknown]
  - Oral mucosal blistering [Unknown]
  - Dyspnoea [Unknown]
  - Oedema peripheral [Unknown]
